FAERS Safety Report 23302177 (Version 1)
Quarter: 2023Q4

REPORT INFORMATION
  Report Type: Spontaneous
  Country: CN (occurrence: CN)
  Receive Date: 20231215
  Receipt Date: 20231215
  Transmission Date: 20240110
  Serious: Yes (Other)
  Sender: FDA-Public Use
  Company Number: CN-ELI_LILLY_AND_COMPANY-CN202312006392

PATIENT
  Age: 82 Year
  Sex: Male
  Weight: 60 kg

DRUGS (3)
  1. HUMULIN R [Suspect]
     Active Substance: INSULIN HUMAN
     Indication: Diabetes mellitus
     Dosage: 18 U, EACH MORNING
     Route: 058
  2. HUMULIN R [Suspect]
     Active Substance: INSULIN HUMAN
     Dosage: 16 U, EACH EVENING
     Route: 058
  3. GLUCOBAY [Concomitant]
     Active Substance: ACARBOSE
     Indication: Product used for unknown indication

REACTIONS (4)
  - Cerebral haemorrhage [Unknown]
  - Visual impairment [Unknown]
  - Head discomfort [Unknown]
  - Injection site pain [Unknown]
